FAERS Safety Report 7179092-5 (Version None)
Quarter: 2010Q4

REPORT INFORMATION
  Report Type: 
  Country: None (occurrence: None)
  Receive Date: 20101221
  Receipt Date: 20101206
  Transmission Date: 20110411
  Serious: No
  Sender: FDA-Public Use
  Company Number: US-PFIZER INC-2010167332

PATIENT
  Age: 53 Year
  Sex: Male
  Weight: 120.18 kg

DRUGS (1)
  1. ADVIL [Suspect]
     Indication: ARTHRALGIA
     Dosage: 3 DF, TWICE DAILY
     Route: 048

REACTIONS (1)
  - DRUG INEFFECTIVE [None]
